FAERS Safety Report 24219981 (Version 2)
Quarter: 2024Q3

REPORT INFORMATION
  Report Type: Spontaneous
  Country: US (occurrence: US)
  Receive Date: 20240817
  Receipt Date: 20240905
  Transmission Date: 20241017
  Serious: Yes (Other)
  Sender: AUROBINDO
  Company Number: US-AUROBINDO-AUR-APL-2024-039467

PATIENT
  Age: 36 Year
  Sex: Female

DRUGS (4)
  1. DIMETHYL FUMARATE [Suspect]
     Active Substance: DIMETHYL FUMARATE
     Indication: Multiple sclerosis
     Dosage: UNK
     Route: 065
     Dates: start: 201312
  2. GLATIRAMER ACETATE [Suspect]
     Active Substance: GLATIRAMER ACETATE
     Indication: Multiple sclerosis
     Dosage: UNK
     Route: 065
  3. METHYLPREDNISOLONE [Concomitant]
     Active Substance: METHYLPREDNISOLONE
     Indication: Immune reconstitution inflammatory syndrome
     Dosage: UNK
     Route: 042
  4. PREDNISONE [Concomitant]
     Active Substance: PREDNISONE
     Indication: Immune reconstitution inflammatory syndrome
     Dosage: UNK
     Route: 048

REACTIONS (1)
  - Drug ineffective [Unknown]
